FAERS Safety Report 5153012-7 (Version None)
Quarter: 2006Q4

REPORT INFORMATION
  Report Type: 
  Country: None (occurrence: None)
  Receive Date: 20061117
  Receipt Date: 20061109
  Transmission Date: 20070319
  Serious: Yes (Hospitalization)
  Sender: FDA-Public Use
  Company Number: US-AMGEN-US199839

PATIENT
  Sex: Female
  Weight: 47.2 kg

DRUGS (7)
  1. PROCRIT [Suspect]
     Indication: ANAEMIA
     Route: 065
     Dates: start: 20060801
  2. MICARDIS [Concomitant]
     Route: 065
  3. VITAMINS [Concomitant]
     Route: 065
  4. IRON [Concomitant]
     Route: 065
  5. LASIX [Concomitant]
     Route: 065
  6. POTASSIUM CHLORIDE [Concomitant]
     Route: 065
  7. PRILOSEC [Concomitant]
     Route: 065

REACTIONS (3)
  - ALOPECIA [None]
  - INTESTINAL OBSTRUCTION [None]
  - POSTOPERATIVE WOUND INFECTION [None]
